FAERS Safety Report 4506371-X (Version None)
Quarter: 2004Q4

REPORT INFORMATION
  Report Type: 
  Country: None (occurrence: None)
  Receive Date: 20041025
  Receipt Date: 20031002
  Transmission Date: 20050328
  Serious: Yes (Other)
  Sender: FDA-Public Use
  Company Number: US-JNJFOC-20030603005

PATIENT
  Age: 18 Year
  Sex: 0
  Weight: 55.2 kg

DRUGS (8)
  1. REMICADE [Suspect]
     Indication: INFLAMMATORY BOWEL DISEASE
     Dosage: 5 MG/KG, 1 IN 1 TOTAL, INTRAVENOUS
     Route: 042
     Dates: start: 20021007, end: 20021007
  2. REMICADE [Suspect]
     Indication: INFLAMMATORY BOWEL DISEASE
     Dosage: 5 MG/KG, 1 IN 1 TOTAL, INTRAVENOUS
     Route: 042
     Dates: start: 20021112, end: 20021112
  3. REMICADE [Suspect]
     Indication: INFLAMMATORY BOWEL DISEASE
     Dosage: 5 MG/KG, 1 IN 1 TOTAL, INTRAVENOUS
     Route: 042
     Dates: start: 20030206, end: 20030206
  4. IMURAN [Concomitant]
  5. PRILOSEC [Concomitant]
  6. MERCAPTOPURINE [Concomitant]
  7. STEROIDS (CORTICOSTEROID NOS) [Concomitant]
  8. OMEPRAZOLE [Concomitant]

REACTIONS (1)
  - DISSEMINATED TUBERCULOSIS [None]
